FAERS Safety Report 5270577-5 (Version None)
Quarter: 2007Q1

REPORT INFORMATION
  Report Type: 
  Country: None (occurrence: None)
  Receive Date: 20070315
  Receipt Date: 20070308
  Transmission Date: 20070707
  Serious: Yes (Other)
  Sender: FDA-Public Use
  Company Number: 236240

PATIENT
  Age: 31 Year
  Sex: Female
  Weight: 86.2 kg

DRUGS (9)
  1. XOLAIR [Suspect]
     Indication: ASTHMA
     Dosage: UNK, 1/MONTH, SUBCUTANEOUS
     Route: 058
     Dates: start: 20041201
  2. FORADIL [Concomitant]
  3. FLOVENT [Concomitant]
  4. ZYRTEC [Concomitant]
  5. SINGULAIR [Concomitant]
  6. RHINOCORT [Concomitant]
  7. PATANOL [Concomitant]
  8. ZOLOFT [Concomitant]
  9. BUPROPION HYDROCHLORIDE [Concomitant]

REACTIONS (3)
  - HYPERSENSITIVITY [None]
  - MIGRAINE [None]
  - TREATMENT NONCOMPLIANCE [None]
